FAERS Safety Report 12111450 (Version 1)
Quarter: 2016Q1

REPORT INFORMATION
  Report Type: Spontaneous
  Country: BG (occurrence: BG)
  Receive Date: 20160224
  Receipt Date: 20160224
  Transmission Date: 20160526
  Serious: Yes (Other)
  Sender: FDA-Public Use
  Company Number: BG-ASTRAZENECA-2016SE17506

PATIENT
  Age: 57 Year
  Sex: Male

DRUGS (2)
  1. XIGDUO XR [Suspect]
     Active Substance: DAPAGLIFLOZIN PROPANEDIOL\METFORMIN HYDROCHLORIDE
     Indication: DIABETES MELLITUS INADEQUATE CONTROL
     Dosage: 5 MG/850 MG, 2X1 TABLET DAILY FOR 7 DAYS
     Route: 048
  2. CO-AMLESSA (AMLODIPINE\PERINDOPRIL) [Suspect]
     Active Substance: AMLODIPINE BESYLATE\PERINDOPRIL
     Route: 065

REACTIONS (2)
  - Diabetic ketoacidosis [Unknown]
  - Constipation [Unknown]
